FAERS Safety Report 8061667-2 (Version None)
Quarter: 2012Q1

REPORT INFORMATION
  Report Type: 
  Country: None (occurrence: None)
  Receive Date: 20120123
  Receipt Date: 20120113
  Transmission Date: 20120608
  Serious: Yes (Hospitalization, Other)
  Sender: FDA-Public Use
  Company Number: FR-BIOGENIDEC-2011BI031541

PATIENT
  Age: 33 Year
  Sex: Female

DRUGS (4)
  1. GUTRON [Concomitant]
     Indication: ORTHOSTATIC HYPOTENSION
  2. CYMBALTA [Concomitant]
     Indication: PAIN
  3. LYRICA [Concomitant]
     Indication: PAIN
  4. TYSABRI [Suspect]
     Indication: MULTIPLE SCLEROSIS
     Route: 042
     Dates: start: 20071001, end: 20110722

REACTIONS (3)
  - EPILEPSY [None]
  - OROPHARYNGEAL PAIN [None]
  - PROGRESSIVE MULTIFOCAL LEUKOENCEPHALOPATHY [None]
